FAERS Safety Report 5160349-4 (Version None)
Quarter: 2006Q4

REPORT INFORMATION
  Report Type: 
  Country: None (occurrence: None)
  Receive Date: 20061120
  Receipt Date: 20061113
  Transmission Date: 20070319
  Serious: Yes (Death)
  Sender: FDA-Public Use
  Company Number: GXKR2006US07301

PATIENT
  Age: 51 Year
  Sex: Female

DRUGS (4)
  1. HALOPERIDOL [Suspect]
     Dosage: ORAL
     Route: 048
  2. RISPERDONE [Suspect]
  3. ACETAMINOPHEN [Suspect]
     Dosage: ORAL
     Route: 048
  4. BENZTROPINE MESYLATE [Suspect]
     Dosage: ORAL
     Route: 048

REACTIONS (8)
  - ACUTE RESPIRATORY DISTRESS SYNDROME [None]
  - BLOOD PRESSURE DIASTOLIC DECREASED [None]
  - HYPERTENSION [None]
  - ILEUS PARALYTIC [None]
  - INTENTIONAL OVERDOSE [None]
  - LETHARGY [None]
  - MENTAL IMPAIRMENT [None]
  - SINUS TACHYCARDIA [None]
